FAERS Safety Report 22079592 (Version 1)
Quarter: 2023Q1

REPORT INFORMATION
  Report Type: Spontaneous
  Country: US (occurrence: US)
  Receive Date: 20230309
  Receipt Date: 20230309
  Transmission Date: 20230418
  Serious: No
  Sender: FDA-Public Use
  Company Number: US-PFIZER INC-PV202200091843

PATIENT
  Age: 76 Year
  Sex: Male

DRUGS (2)
  1. XELJANZ [Suspect]
     Active Substance: TOFACITINIB CITRATE
     Indication: Colitis ulcerative
     Dosage: 10 MG, 2X/DAY (2 TABLETS OF 5MG TWICE DAILY FOR YEARS)
     Route: 048
  2. XELJANZ [Suspect]
     Active Substance: TOFACITINIB CITRATE
     Dosage: 5 MG, 2X/DAY (5MG 1 TABLET TWICE DAILY BY MOUTH)
     Route: 048

REACTIONS (3)
  - Memory impairment [Unknown]
  - Intentional product misuse [Unknown]
  - Product dose omission in error [Unknown]
